FAERS Safety Report 6593286-9 (Version None)
Quarter: 2010Q1

REPORT INFORMATION
  Report Type: 
  Country: None (occurrence: None)
  Receive Date: 20100222
  Receipt Date: 20090105
  Transmission Date: 20100710
  Serious: No
  Sender: FDA-Public Use
  Company Number: US-BRISTOL-MYERS SQUIBB COMPANY-14396758

PATIENT
  Age: 65 Year
  Sex: Male

DRUGS (7)
  1. ORENCIA [Suspect]
     Indication: RHEUMATOID ARTHRITIS
     Dosage: PREVIOUS INFUSION 4 WEEKS AGO AND RECEIVED ON 05NOV2008 ALSO
     Route: 042
     Dates: start: 20071108
  2. PLAVIX [Concomitant]
  3. ASPIRIN [Concomitant]
  4. PREDNISONE [Concomitant]
  5. SIMVASTATIN [Concomitant]
  6. LISINOPRIL [Concomitant]
  7. LORTAB [Concomitant]

REACTIONS (2)
  - GYNAECOMASTIA [None]
  - TENDERNESS [None]
